FAERS Safety Report 20840988 (Version 1)
Quarter: 2022Q2

REPORT INFORMATION
  Report Type: Spontaneous
  Country: US (occurrence: US)
  Receive Date: 20220517
  Receipt Date: 20220517
  Transmission Date: 20220721
  Serious: No
  Sender: FDA-Public Use
  Company Number: US-PFIZER INC-202101808862

PATIENT
  Age: 65 Year
  Sex: Female
  Weight: 61.23 kg

DRUGS (1)
  1. LIOTHYRONINE SODIUM [Suspect]
     Active Substance: LIOTHYRONINE SODIUM
     Dosage: 90-100 UG, 1X/DAY
     Dates: start: 2016

REACTIONS (4)
  - Weight increased [Unknown]
  - Sluggishness [Unknown]
  - Feeling abnormal [Unknown]
  - Thyroid disorder [Unknown]

NARRATIVE: CASE EVENT DATE: 20160101
